FAERS Safety Report 17866330 (Version 2)
Quarter: 2020Q3

REPORT INFORMATION
  Report Type: Spontaneous
  Country: IL (occurrence: IL)
  Receive Date: 20200605
  Receipt Date: 20200714
  Transmission Date: 20201103
  Serious: Yes (Other)
  Sender: FDA-Public Use
  Company Number: IL-PFIZER INC-2020219131

PATIENT
  Age: 63 Year
  Sex: Male

DRUGS (2)
  1. AXITINIB [Suspect]
     Active Substance: AXITINIB
     Dosage: UNK
     Dates: start: 201711
  2. AVELUMAB [Suspect]
     Active Substance: AVELUMAB
     Dosage: UNK
     Dates: start: 201711

REACTIONS (4)
  - Hypothyroidism [Unknown]
  - Myocarditis [Unknown]
  - Hypertension [Unknown]
  - Diarrhoea [Unknown]
